FAERS Safety Report 12227223 (Version 1)
Quarter: 2016Q1

REPORT INFORMATION
  Report Type: Spontaneous
  Country: NL (occurrence: NL)
  Receive Date: 20160331
  Receipt Date: 20160331
  Transmission Date: 20160526
  Serious: Yes (Other)
  Sender: FDA-Public Use
  Company Number: NL-PFIZER INC-2016178178

PATIENT
  Age: 43 Year
  Sex: Female

DRUGS (20)
  1. ESOMEPRAZOLE MAGNESIUM. [Concomitant]
     Active Substance: ESOMEPRAZOLE MAGNESIUM
     Dosage: 40 MG, 2X/DAY
     Route: 048
     Dates: start: 20110117
  2. PIROXICAM. [Concomitant]
     Active Substance: PIROXICAM
     Dosage: 20 MG, 1X/DAY
     Route: 048
     Dates: start: 20091215
  3. ETHINYLESTRADIOL/LEVONORGESTREL A [Concomitant]
     Dosage: 1 DF, CYCLIC
     Route: 048
     Dates: start: 20150703
  4. BUDESONIDE NEVEL [Concomitant]
     Dosage: 1 DF, 2X/DAY
     Route: 055
     Dates: start: 20130827
  5. HYDROXOCOBALAMINE [Concomitant]
     Dosage: 1 DF, UNK
     Route: 065
     Dates: start: 20130422
  6. CLONAZEPAM. [Concomitant]
     Active Substance: CLONAZEPAM
     Dosage: 1 MG, 3X/DAY
     Route: 048
     Dates: start: 20090724
  7. CLINDAMYCIN HCL [Suspect]
     Active Substance: CLINDAMYCIN HYDROCHLORIDE
     Indication: TOOTH INFECTION
     Dosage: 600 MG, 3X/DAY
     Route: 048
     Dates: start: 20160202
  8. PREDNISOLONE. [Concomitant]
     Active Substance: PREDNISOLONE
     Dosage: 5 MG, 1X/DAY
     Route: 048
     Dates: start: 20130912
  9. BACLOFEN. [Concomitant]
     Active Substance: BACLOFEN
     Dosage: 10 MG, 4X/DAY
     Route: 048
     Dates: start: 20100222
  10. AZITROMYCIN [Concomitant]
     Active Substance: AZITHROMYCIN ANHYDROUS
     Dosage: 1 DF, UNK
     Route: 048
     Dates: start: 20140226
  11. BETMIGA [Concomitant]
     Active Substance: MIRABEGRON
     Dosage: 50 MG, 1X/DAY
     Route: 048
     Dates: start: 20150410
  12. MAGNESIUMSULFAAT [Concomitant]
     Dosage: 500 MG, 2X/DAY
     Route: 048
     Dates: start: 20150205
  13. EPIPEN [Concomitant]
     Active Substance: EPINEPHRINE
     Dosage: 1 DF, UNK
     Route: 065
     Dates: start: 20131128
  14. COLECALCIFEROL [Concomitant]
     Active Substance: CHOLECALCIFEROL
     Dosage: 1 DF, UNK
     Route: 048
     Dates: start: 20131025
  15. PARACETAMOL [Concomitant]
     Active Substance: ACETAMINOPHEN
     Dosage: 1000 MG, 2X/DAY
     Route: 048
     Dates: start: 20091030
  16. FOSTER [Concomitant]
     Active Substance: BECLOMETHASONE\FORMOTEROL
     Dosage: 1 DF, 2X/DAY
     Route: 055
     Dates: start: 20131202
  17. SALBUTAMOL SULFATE [Concomitant]
     Active Substance: ALBUTEROL SULFATE
     Dosage: 100 UG, UNK
     Route: 055
     Dates: start: 20101123
  18. IPRAMOL [Concomitant]
     Active Substance: ALBUTEROL SULFATE\IPRATROPIUM BROMIDE
     Dosage: 1 DF, 4X/DAY
     Route: 055
     Dates: start: 20130827
  19. VESICARE [Concomitant]
     Active Substance: SOLIFENACIN SUCCINATE
     Dosage: 10 MG, 1X/DAY
     Route: 048
     Dates: start: 20111103
  20. PSYLLIUM HUSK [Concomitant]
     Active Substance: PSYLLIUM HUSK
     Dosage: 3.25 G, 2X/DAY
     Route: 048
     Dates: start: 20150302

REACTIONS (5)
  - Wound [Recovering/Resolving]
  - Gastrointestinal disorder [Recovered/Resolved]
  - Epistaxis [Recovering/Resolving]
  - Mucous membrane disorder [Recovered/Resolved]
  - Rectal haemorrhage [Recovering/Resolving]

NARRATIVE: CASE EVENT DATE: 201602
